FAERS Safety Report 13099610 (Version 1)
Quarter: 2017Q1

REPORT INFORMATION
  Report Type: Spontaneous
  Country: US (occurrence: US)
  Receive Date: 20170109
  Receipt Date: 20170109
  Transmission Date: 20170428
  Serious: Yes (Hospitalization)
  Sender: FDA-Public Use
  Company Number: US-ROCHE-1877217

PATIENT
  Age: 44 Year
  Sex: Female

DRUGS (2)
  1. ESBRIET [Suspect]
     Active Substance: PIRFENIDONE
     Indication: IDIOPATHIC PULMONARY FIBROSIS
     Route: 048
     Dates: start: 20160628, end: 20161024
  2. ESBRIET [Suspect]
     Active Substance: PIRFENIDONE
     Dosage: 1 CAPSULE THREE TIMES PER DAY FOR 1 WEEK
     Route: 048

REACTIONS (4)
  - Abdominal discomfort [Unknown]
  - Gastric infection [Unknown]
  - Nausea [Unknown]
  - Decreased appetite [Unknown]

NARRATIVE: CASE EVENT DATE: 20161024
